FAERS Safety Report 10684782 (Version 1)
Quarter: 2014Q4

REPORT INFORMATION
  Report Type: Spontaneous
  Country: US (occurrence: US)
  Receive Date: 20141231
  Receipt Date: 20141231
  Transmission Date: 20150529
  Serious: Yes (Other)
  Sender: FDA-Public Use
  Company Number: US-CIPLA LTD.-2014US02945

PATIENT

DRUGS (4)
  1. DOCETAXEL. [Suspect]
     Active Substance: DOCETAXEL
     Indication: UTERINE LEIOMYOSARCOMA
     Dosage: 100 MG/M2 OR 75 MG/M2 ON DAY EIGHT
     Route: 042
  2. GEMCITABINE [Suspect]
     Active Substance: GEMCITABINE\GEMCITABINE HYDROCHLORIDE
     Indication: UTERINE LEIOMYOSARCOMA
     Dosage: 900 MG/M2 OR 675 MG/M2 ON DAYS ONE AND EIGHT
     Route: 042
  3. PEGFILGRASTIM [Concomitant]
     Active Substance: PEGFILGRASTIM
     Dosage: 6 MG,  ON DAY NINE OR 10
     Route: 058
  4. GRANULOCYTE GROWTH FACTOR [Concomitant]
     Dosage: 150 ?G/M, ON DAYS NINE THROUGH 15
     Route: 058

REACTIONS (1)
  - Pain [Unknown]
